FAERS Safety Report 7058239-5 (Version None)
Quarter: 2010Q4

REPORT INFORMATION
  Report Type: 
  Country: None (occurrence: None)
  Receive Date: 20101022
  Receipt Date: 20101014
  Transmission Date: 20110411
  Serious: No
  Sender: FDA-Public Use
  Company Number: US-PFIZER INC-2010131274

PATIENT
  Sex: Female

DRUGS (2)
  1. DETROL LA [Suspect]
     Dosage: 4 MG, UNK
  2. VESICARE [Suspect]
     Dosage: UNK

REACTIONS (2)
  - FATIGUE [None]
  - URINARY TRACT INFECTION [None]
